FAERS Safety Report 6291689-3 (Version None)
Quarter: 2009Q3

REPORT INFORMATION
  Report Type: 
  Country: None (occurrence: None)
  Receive Date: 20090730
  Receipt Date: 20090730
  Transmission Date: 20100115
  Serious: Yes (Other)
  Sender: FDA-Public Use
  Company Number: None

PATIENT
  Sex: Female
  Weight: 73 kg

DRUGS (1)
  1. CALCIUM ACETATE [Suspect]
     Indication: HYPERPHOSPHATAEMIA
     Dosage: 2 TIDAC PO
     Route: 048

REACTIONS (1)
  - NO THERAPEUTIC RESPONSE [None]
